FAERS Safety Report 15937240 (Version 1)
Quarter: 2019Q1

REPORT INFORMATION
  Report Type: Spontaneous
  Country: CA (occurrence: CA)
  Receive Date: 20190208
  Receipt Date: 20190208
  Transmission Date: 20190417
  Serious: Yes (Other)
  Sender: FDA-Public Use
  Company Number: None

PATIENT
  Age: 32 Year
  Sex: Female
  Weight: 65.7 kg

DRUGS (1)
  1. OCEAN POTION SPF30 [Suspect]
     Active Substance: AVOBENZONE\HOMOSALATE\OCTISALATE\OCTOCRYLENE
     Indication: PROPHYLAXIS AGAINST SOLAR RADIATION
     Dates: start: 20181101, end: 20181105

REACTIONS (2)
  - Drug hypersensitivity [None]
  - Urticaria [None]

NARRATIVE: CASE EVENT DATE: 20181105
